FAERS Safety Report 18164983 (Version 1)
Quarter: 2020Q3

REPORT INFORMATION
  Report Type: Report from Study
  Country: US (occurrence: US)
  Receive Date: 20200818
  Receipt Date: 20200818
  Transmission Date: 20201103
  Serious: Yes (Hospitalization)
  Sender: FDA-Public Use
  Company Number: US-ACTELION-A-NJ2020-205322

PATIENT
  Age: 68 Year
  Sex: Male

DRUGS (15)
  1. OPSUMIT [Suspect]
     Active Substance: MACITENTAN
     Indication: PULMONARY ARTERIAL HYPERTENSION
     Dosage: 10 MG
     Route: 048
     Dates: start: 202004
  2. ADVAIR HFA [Concomitant]
     Active Substance: FLUTICASONE PROPIONATE\SALMETEROL XINAFOATE
  3. PANTOPRAZOLE SODIUM. [Concomitant]
     Active Substance: PANTOPRAZOLE SODIUM
  4. CARVEDILOL. [Concomitant]
     Active Substance: CARVEDILOL
  5. FLUOXETINE HCL [Concomitant]
     Active Substance: FLUOXETINE HYDROCHLORIDE
  6. IPRATROPIUM;SALBUTAMOL [Concomitant]
     Active Substance: ALBUTEROL\IPRATROPIUM
  7. POTASSIUM CHLORIDE. [Concomitant]
     Active Substance: POTASSIUM CHLORIDE
  8. ATORVASTATIN [Concomitant]
     Active Substance: ATORVASTATIN
  9. CALCIUM [Concomitant]
     Active Substance: CALCIUM
  10. FUROSEMIDE. [Concomitant]
     Active Substance: FUROSEMIDE
  11. ELIQUIS [Concomitant]
     Active Substance: APIXABAN
  12. FERROUS SULFATE. [Concomitant]
     Active Substance: FERROUS SULFATE
  13. FOLIC ACID. [Concomitant]
     Active Substance: FOLIC ACID
  14. SPIRIVA [Concomitant]
     Active Substance: TIOTROPIUM BROMIDE MONOHYDRATE
  15. VENTOLIN HFA [Concomitant]
     Active Substance: ALBUTEROL SULFATE

REACTIONS (4)
  - Oxygen saturation decreased [Unknown]
  - Surgery [Unknown]
  - Dyspnoea [Recovered/Resolved]
  - Product dose omission issue [Unknown]

NARRATIVE: CASE EVENT DATE: 20200506
